FAERS Safety Report 26149379 (Version 1)
Quarter: 2025Q4

REPORT INFORMATION
  Report Type: Spontaneous
  Country: US (occurrence: US)
  Receive Date: 20251212
  Receipt Date: 20251212
  Transmission Date: 20260118
  Serious: Yes (Hospitalization)
  Sender: Steriscience PTE
  Company Number: US-STERISCIENCE B.V.-2025-ST-001693

PATIENT
  Sex: Female

DRUGS (1)
  1. FOCINVEZ [Suspect]
     Active Substance: FOSAPREPITANT DIMEGLUMINE
     Indication: Product used for unknown indication
     Dosage: ADMINISTER 150 MG IV INFUSION OVER 20 MINUTES,APPROXIMATELY 30 MINUTES PRIOR TO CHEMO
     Route: 042

REACTIONS (1)
  - Hospitalisation [Unknown]
